FAERS Safety Report 4655281-6 (Version None)
Quarter: 2005Q2

REPORT INFORMATION
  Report Type: 
  Country: None (occurrence: None)
  Receive Date: 20050506
  Receipt Date: 20050429
  Transmission Date: 20051028
  Serious: Yes (Hospitalization)
  Sender: FDA-Public Use
  Company Number: US-JNJFOC-20050203234

PATIENT
  Sex: Male
  Weight: 97.98 kg

DRUGS (5)
  1. DURAGESIC-100 [Suspect]
     Route: 062
     Dates: start: 20000101
  2. DURAGESIC-100 [Suspect]
     Route: 062
     Dates: start: 20000101
  3. DURAGESIC-100 [Suspect]
     Route: 062
     Dates: start: 20000101
  4. XANAX [Concomitant]
     Indication: ANXIETY
     Route: 049
     Dates: start: 20010101
  5. EFFEXOR [Concomitant]
     Indication: DEPRESSION
     Route: 049
     Dates: start: 20010101

REACTIONS (6)
  - ANXIETY [None]
  - DEPRESSION [None]
  - DEVICE MALFUNCTION [None]
  - DIABETES MELLITUS [None]
  - SPINAL FRACTURE [None]
  - SPINAL FUSION SURGERY [None]
